FAERS Safety Report 25014968 (Version 1)
Quarter: 2025Q1

REPORT INFORMATION
  Report Type: Report from Study
  Country: IT (occurrence: IT)
  Receive Date: 20250226
  Receipt Date: 20250226
  Transmission Date: 20250409
  Serious: Yes (Hospitalization, Other)
  Sender: JAZZ
  Company Number: IT-JAZZ PHARMACEUTICALS-2025-IT-003364

PATIENT
  Age: 38 Year
  Sex: Female
  Weight: 54 kg

DRUGS (1)
  1. ZANIDATAMAB [Suspect]
     Active Substance: ZANIDATAMAB
     Indication: Cholangiocarcinoma
     Dosage: UNK, Q2W
     Route: 042
     Dates: start: 20230407

REACTIONS (1)
  - Liver abscess [Unknown]
